FAERS Safety Report 17731876 (Version 5)
Quarter: 2020Q3

REPORT INFORMATION
  Report Type: Spontaneous
  Country: US (occurrence: US)
  Receive Date: 20200501
  Receipt Date: 20200730
  Transmission Date: 20201102
  Serious: No
  Sender: FDA-Public Use
  Company Number: US-GLAXOSMITHKLINE-US2020AMR071699

PATIENT
  Sex: Female

DRUGS (3)
  1. ZEJULA [Suspect]
     Active Substance: NIRAPARIB
     Dosage: 100 MG
     Route: 048
     Dates: end: 20200727
  2. ZEJULA [Suspect]
     Active Substance: NIRAPARIB
     Indication: CHRONIC KIDNEY DISEASE
     Dosage: 200 MG, QD
     Dates: start: 20200403
  3. ZEJULA [Suspect]
     Active Substance: NIRAPARIB
     Indication: ANAEMIA
     Dosage: 100 MG, QD
     Route: 065
     Dates: start: 20200430

REACTIONS (9)
  - Tumour marker increased [Unknown]
  - Renal disorder [Unknown]
  - Ill-defined disorder [Unknown]
  - Dyspnoea [Recovering/Resolving]
  - Adverse drug reaction [Unknown]
  - Product use in unapproved indication [Unknown]
  - Fatigue [Unknown]
  - Tongue discomfort [Recovering/Resolving]
  - Off label use [Unknown]
